FAERS Safety Report 8757074 (Version 3)
Quarter: 2018Q4

REPORT INFORMATION
  Report Type: Spontaneous
  Country: FR (occurrence: FR)
  Receive Date: 20120828
  Receipt Date: 20181003
  Transmission Date: 20190205
  Serious: Yes (Life-Threatening)
  Sender: FDA-Public Use
  Company Number: FR-PFIZER INC-2012205949

PATIENT
  Age: 74 Year
  Sex: Female

DRUGS (5)
  1. CALCIUM FOLINATE ZENTIVA [Suspect]
     Active Substance: LEUCOVORIN CALCIUM
     Indication: COLORECTAL CANCER
     Dosage: 612 MG, CYCLIC
     Route: 042
     Dates: start: 20120810, end: 20120810
  2. ELOXATIN [Suspect]
     Active Substance: OXALIPLATIN
     Indication: COLORECTAL CANCER
     Dosage: 50 MG, CYCLIC (OVER 65 MIN)
     Route: 042
     Dates: start: 20120810, end: 20120810
  3. ZOPHREN [ONDANSETRON HYDROCHLORIDE] [Suspect]
     Active Substance: ONDANSETRON
     Indication: COLORECTAL CANCER
     Dosage: 8 MG, SINGLE
     Route: 042
     Dates: start: 20120810, end: 20120810
  4. FLUOROURACILE WINTHROP [Suspect]
     Active Substance: FLUOROURACIL
     Indication: COLORECTAL CANCER
     Dosage: UNK, CYCLIC
     Route: 042
     Dates: start: 20120810, end: 20120812
  5. SOLU-MEDROL [Suspect]
     Active Substance: METHYLPREDNISOLONE SODIUM SUCCINATE
     Indication: COLORECTAL CANCER
     Dosage: 120 MG, CYCLIC
     Route: 042
     Dates: start: 20120810, end: 20120810

REACTIONS (6)
  - Hypertension [Recovered/Resolved]
  - Product use in unapproved indication [Unknown]
  - Chest discomfort [Recovered/Resolved]
  - Vomiting [Recovered/Resolved]
  - Urticaria [Recovered/Resolved]
  - Hypersensitivity [Recovered/Resolved]

NARRATIVE: CASE EVENT DATE: 20120810
